FAERS Safety Report 5157725-2 (Version None)
Quarter: 2006Q4

REPORT INFORMATION
  Report Type: 
  Country: None (occurrence: None)
  Receive Date: 20061116
  Receipt Date: 20061103
  Transmission Date: 20070319
  Serious: Yes (Other)
  Sender: FDA-Public Use
  Company Number: GXKR2006US07159

PATIENT
  Age: 58 Year
  Sex: Female

DRUGS (1)
  1. VERAPAMIL [Suspect]
     Indication: DRUG USE FOR UNKNOWN INDICATION
     Dosage: 1080 MG, ORAL
     Route: 048

REACTIONS (3)
  - BRADYCARDIA [None]
  - DRUG ADMINISTRATION ERROR [None]
  - HYPOTENSION [None]
